FAERS Safety Report 20315661 (Version 1)
Quarter: 2022Q1

REPORT INFORMATION
  Report Type: Spontaneous
  Country: US (occurrence: None)
  Receive Date: 20220110
  Receipt Date: 20220110
  Transmission Date: 20220423
  Serious: No
  Sender: FDA-Public Use
  Company Number: US-ROCHE-2781603

PATIENT
  Sex: Female
  Weight: 99.426 kg

DRUGS (1)
  1. RITUXAN [Suspect]
     Active Substance: RITUXIMAB
     Indication: Chronic lymphocytic leukaemia
     Route: 065

REACTIONS (3)
  - Flushing [Recovered/Resolved]
  - Chills [Recovered/Resolved]
  - Vomiting [Recovered/Resolved]
